FAERS Safety Report 14431726 (Version 2)
Quarter: 2018Q1

REPORT INFORMATION
  Report Type: Spontaneous
  Country: FR (occurrence: FR)
  Receive Date: 20180124
  Receipt Date: 20180208
  Transmission Date: 20180509
  Serious: Yes (Hospitalization)
  Sender: FDA-Public Use
  Company Number: FR-ELI_LILLY_AND_COMPANY-FR201801008664

PATIENT
  Age: 62 Year
  Sex: Female
  Weight: 53.9 kg

DRUGS (1)
  1. GEMZAR [Suspect]
     Active Substance: GEMCITABINE HYDROCHLORIDE
     Indication: ADENOCARCINOMA PANCREAS
     Dosage: UNK UNK, UNKNOWN
     Route: 042
     Dates: start: 20170704, end: 20171107

REACTIONS (3)
  - Thrombotic microangiopathy [Recovered/Resolved]
  - Polyneuropathy [Recovered/Resolved]
  - Bone marrow failure [Recovered/Resolved]

NARRATIVE: CASE EVENT DATE: 201711
